FAERS Safety Report 9830686 (Version 1)
Quarter: 2014Q1

REPORT INFORMATION
  Report Type: Spontaneous
  Country: US (occurrence: US)
  Receive Date: 20140120
  Receipt Date: 20140120
  Transmission Date: 20141002
  Serious: No
  Sender: FDA-Public Use
  Company Number: US-TEVA-456822USA

PATIENT
  Age: 36 Year
  Sex: Female
  Weight: 70.82 kg

DRUGS (2)
  1. PARAGARD 380A [Suspect]
     Indication: CONTRACEPTION
     Route: 015
  2. DOXYCYCLINE [Concomitant]
     Indication: ACNE

REACTIONS (2)
  - Vaginal discharge [Recovered/Resolved]
  - Device breakage [Not Recovered/Not Resolved]
